FAERS Safety Report 9510002 (Version 1)
Quarter: 2013Q3

REPORT INFORMATION
  Report Type: Spontaneous
  Country: US (occurrence: US)
  Receive Date: 20130909
  Receipt Date: 20130909
  Transmission Date: 20140515
  Serious: No
  Sender: FDA-Public Use
  Company Number: US-BRISTOL-MYERS SQUIBB COMPANY-18871616

PATIENT
  Age: 5 Decade
  Sex: Male

DRUGS (1)
  1. ABILIFY [Suspect]
     Indication: BIPOLAR DISORDER
     Dosage: INITIAL DOSE-10MG,REDUCED TO 1.25MG AND FINALLY STOPPED
     Dates: start: 2007, end: 2013

REACTIONS (2)
  - Blood glucose increased [Unknown]
  - Weight increased [Unknown]
